FAERS Safety Report 5889784-3 (Version None)
Quarter: 2008Q3

REPORT INFORMATION
  Report Type: 
  Country: None (occurrence: None)
  Receive Date: 20080919
  Receipt Date: 20080908
  Transmission Date: 20090109
  Serious: Yes (Other)
  Sender: FDA-Public Use
  Company Number: US-ELI_LILLY_AND_COMPANY-US200809002106

PATIENT
  Age: 46 Year
  Sex: Female

DRUGS (3)
  1. SYMBYAX [Suspect]
     Indication: BIPOLAR I DISORDER
     Dosage: 1 D/F, DAILY (1/D)
     Dates: start: 20080602
  2. FLUOXETINE [Concomitant]
     Dates: end: 20080501
  3. LEXAPRO [Concomitant]
     Dates: end: 20080501

REACTIONS (5)
  - ALCOHOL WITHDRAWAL SYNDROME [None]
  - BLOOD MAGNESIUM DECREASED [None]
  - BLOOD POTASSIUM DECREASED [None]
  - CLUSTER HEADACHE [None]
  - GRAND MAL CONVULSION [None]
